FAERS Safety Report 9222239 (Version 1)
Quarter: 2013Q1

REPORT INFORMATION
  Report Type: Spontaneous
  Country: US (occurrence: None)
  Receive Date: 20120914
  Receipt Date: 20120914
  Transmission Date: 20140127
  Serious: Yes (Other)
  Sender: FDA-Public Use
  Company Number: JPI-P-020508

PATIENT
  Age: 53 Year
  Sex: Male
  Weight: 88.45 kg

DRUGS (6)
  1. XYREM ?(500 MILLIGRAM/MILLILITERS, SOLUTION)(SODIUM OXYBATE) [Suspect]
     Indication: NARCOLEPSY
     Dosage: 4.5 GM (2.25 GM,2 IN 1 D)
     Route: 048
     Dates: start: 20120113, end: 2012
  2. XYREM ?(500 MILLIGRAM/MILLILITERS, SOLUTION)(SODIUM OXYBATE) [Suspect]
     Indication: SOMNOLENCE
     Dosage: 4.5 GM (2.25 GM,2 IN 1 D)
     Route: 048
     Dates: start: 20120113, end: 2012
  3. XYREM ?(500 MILLIGRAM/MILLILITERS, SOLUTION)(SODIUM OXYBATE) [Suspect]
     Indication: INSOMNIA
     Dosage: 4.5 GM (2.25 GM,2 IN 1 D)
     Route: 048
     Dates: start: 20120113, end: 2012
  4. XYREM ?(500 MILLIGRAM/MILLILITERS, SOLUTION)(SODIUM OXYBATE) [Suspect]
     Indication: SLEEP APNOEA SYNDROME
     Dosage: 4.5 GM (2.25 GM,2 IN 1 D)
     Route: 048
     Dates: start: 20120113, end: 2012
  5. XYREM ?(500 MILLIGRAM/MILLILITERS, SOLUTION)(SODIUM OXYBATE) [Suspect]
     Indication: HYPERSOMNIA
     Dosage: 4.5 GM (2.25 GM,2 IN 1 D)
     Route: 048
     Dates: start: 20120113, end: 2012
  6. MULTIPLE UNSPECIFIED MEDICATIONS [Concomitant]

REACTIONS (4)
  - Hypertension [None]
  - Weight decreased [None]
  - Decreased appetite [None]
  - Nausea [None]
